FAERS Safety Report 11459547 (Version 1)
Quarter: 2015Q3

REPORT INFORMATION
  Report Type: Spontaneous
  Country: US (occurrence: US)
  Receive Date: 20150904
  Receipt Date: 20150904
  Transmission Date: 20151125
  Serious: No
  Sender: FDA-Public Use
  Company Number: US-TARO-2015TAR00211

PATIENT
  Age: 81 Year
  Sex: Male
  Weight: 86.17 kg

DRUGS (9)
  1. EYE VITAMIN (UNSPECIFIED) [Concomitant]
     Dosage: UNK, 1X/DAY
  2. FUROSEMIDE. [Concomitant]
     Active Substance: FUROSEMIDE
     Dosage: 20 MG, 1X/DAY
  3. WARFARIN SODIUM TABLETS USP 5MG [Suspect]
     Active Substance: WARFARIN SODIUM
     Dosage: 5.0 UNK, UNK
     Route: 048
  4. K-CHLOR [Concomitant]
     Dosage: UNK UNK, 1X/DAY
  5. TAMSULOSIN [Concomitant]
     Active Substance: TAMSULOSIN
     Dosage: 0.4 MG, 1X/DAY
  6. LIPITOR [Concomitant]
     Active Substance: ATORVASTATIN CALCIUM
     Dosage: 10 MG, 1X/DAY
  7. WARFARIN SODIUM TABLETS USP 5MG [Suspect]
     Active Substance: WARFARIN SODIUM
     Indication: ATRIAL FIBRILLATION
     Dosage: 2.5 MG, EVERY 48 HOURS
     Route: 048
  8. METOPROLOL [Concomitant]
     Active Substance: METOPROLOL
     Dosage: 25 MG, 1X/DAY
  9. WARFARIN SODIUM TABLETS USP 1MG [Suspect]
     Active Substance: WARFARIN SODIUM
     Indication: ATRIAL FIBRILLATION

REACTIONS (3)
  - Drug dispensing error [Unknown]
  - Product quality issue [Not Recovered/Not Resolved]
  - International normalised ratio decreased [Unknown]

NARRATIVE: CASE EVENT DATE: 201502
